FAERS Safety Report 12929209 (Version 2)
Quarter: 2022Q2

REPORT INFORMATION
  Report Type: Spontaneous
  Country: US (occurrence: US)
  Receive Date: 20161110
  Receipt Date: 20220509
  Transmission Date: 20220721
  Serious: No
  Sender: FDA-Public Use
  Company Number: US-PFIZER INC-2016518768

PATIENT
  Sex: Female

DRUGS (2)
  1. TETRACYCLINE HYDROCHLORIDE [Suspect]
     Active Substance: TETRACYCLINE HYDROCHLORIDE
     Indication: Ear infection
     Dosage: UNK
  2. TETRACYCLINE HYDROCHLORIDE [Suspect]
     Active Substance: TETRACYCLINE HYDROCHLORIDE
     Dosage: UNK
     Dates: start: 1967

REACTIONS (2)
  - Tooth discolouration [Unknown]
  - Tooth disorder [Unknown]

NARRATIVE: CASE EVENT DATE: 19670101
